FAERS Safety Report 22530437 (Version 1)
Quarter: 2023Q2

REPORT INFORMATION
  Report Type: Spontaneous
  Country: CN (occurrence: CN)
  Receive Date: 20230607
  Receipt Date: 20230607
  Transmission Date: 20230721
  Serious: Yes (Life-Threatening)
  Sender: FDA-Public Use
  Company Number: CN-PFIZER INC-PV202300099102

PATIENT
  Age: 54 Year
  Sex: Female
  Weight: 50 kg

DRUGS (3)
  1. LINEZOLID [Suspect]
     Active Substance: LINEZOLID
     Indication: Septic shock
     Dosage: 0.6 G, 2X/DAY
     Route: 041
     Dates: start: 20230529, end: 20230602
  2. LINEZOLID [Suspect]
     Active Substance: LINEZOLID
     Indication: Toxic shock syndrome
  3. DEXTROSE [Concomitant]
     Active Substance: DEXTROSE\DEXTROSE MONOHYDRATE
     Indication: Vehicle solution use
     Dosage: 2X/DAY
     Route: 041
     Dates: start: 20230529, end: 20230602

REACTIONS (2)
  - Platelet count decreased [Unknown]
  - Off label use [Unknown]

NARRATIVE: CASE EVENT DATE: 20230529
